FAERS Safety Report 10017805 (Version 1)
Quarter: 2014Q1

REPORT INFORMATION
  Report Type: Spontaneous
  Country: US (occurrence: US)
  Receive Date: 20140318
  Receipt Date: 20140318
  Transmission Date: 20141002
  Serious: Yes (Other)
  Sender: FDA-Public Use
  Company Number: US-ASTELLAS-2014US002499

PATIENT
  Age: 5 Year
  Sex: Male

DRUGS (1)
  1. PROGRAF [Suspect]
     Indication: RENAL TRANSPLANT
     Dosage: 3.2 MG, UNKNOWN/D
     Route: 050
     Dates: start: 2013

REACTIONS (4)
  - Wrong technique in drug usage process [Unknown]
  - Urine osmolarity decreased [Unknown]
  - Immunosuppressant drug level increased [Unknown]
  - Diarrhoea [Unknown]
